FAERS Safety Report 5222970-4 (Version None)
Quarter: 2007Q1

REPORT INFORMATION
  Report Type: 
  Country: None (occurrence: None)
  Receive Date: 20070124
  Receipt Date: 20070112
  Transmission Date: 20070707
  Serious: Yes (Hospitalization)
  Sender: FDA-Public Use
  Company Number: 2006-152158-NL

PATIENT
  Age: 40 Year
  Sex: Male

DRUGS (4)
  1. MIRTAZAPINE [Suspect]
     Dosage: DF
  2. TRAMADOL HCL [Concomitant]
  3. LANSOPRAZOLE [Concomitant]
  4. PARACETAMOL [Concomitant]

REACTIONS (3)
  - HEADACHE [None]
  - HEMIPLEGIA [None]
  - NERVOUS SYSTEM DISORDER [None]
